FAERS Safety Report 4337842-7 (Version None)
Quarter: 2004Q1

REPORT INFORMATION
  Report Type: 
  Country: None (occurrence: None)
  Receive Date: 20040326
  Receipt Date: 20031003
  Transmission Date: 20041129
  Serious: Yes (Hospitalization)
  Sender: FDA-Public Use
  Company Number: 2003UW12727

PATIENT
  Sex: Female

DRUGS (1)
  1. ZESTRIL [Suspect]
     Dosage: 10 MG PO
     Route: 048

REACTIONS (1)
  - ANGIONEUROTIC OEDEMA [None]
